FAERS Safety Report 5685333-3 (Version None)
Quarter: 2008Q1

REPORT INFORMATION
  Report Type: 
  Country: None (occurrence: None)
  Receive Date: 20080328
  Receipt Date: 20080317
  Transmission Date: 20080703
  Serious: Yes (Other)
  Sender: FDA-Public Use
  Company Number: BR-PFIZER INC-2008025011

PATIENT
  Sex: Female
  Weight: 69 kg

DRUGS (1)
  1. DEPO-PROVERA SUSPENSION/INJ [Suspect]
     Indication: CONTRACEPTION
     Route: 030
     Dates: start: 20071109, end: 20071109

REACTIONS (4)
  - ABDOMINAL PAIN [None]
  - ENDOMETRIAL DISORDER [None]
  - UTERINE DISORDER [None]
  - VAGINAL HAEMORRHAGE [None]
